FAERS Safety Report 5614952-5 (Version None)
Quarter: 2008Q1

REPORT INFORMATION
  Report Type: 
  Country: None (occurrence: None)
  Receive Date: 20080206
  Receipt Date: 20080131
  Transmission Date: 20080703
  Serious: Yes (Other)
  Sender: FDA-Public Use
  Company Number: GB-JNJFOC-20080200078

PATIENT
  Age: 67 Year
  Sex: Female

DRUGS (6)
  1. SIMVASTATIN [Suspect]
     Indication: DRUG USE FOR UNKNOWN INDICATION
  2. ASPIRIN [Interacting]
     Indication: DRUG USE FOR UNKNOWN INDICATION
  3. PREGABALIN [Interacting]
     Indication: TRIGEMINAL NEURALGIA
     Route: 065
  4. CARDICOR [Interacting]
     Indication: DRUG USE FOR UNKNOWN INDICATION
  5. CLOPIDOGREL [Interacting]
     Indication: DRUG USE FOR UNKNOWN INDICATION
     Route: 065
  6. RAMIPRIL [Interacting]
     Indication: DRUG USE FOR UNKNOWN INDICATION

REACTIONS (2)
  - DRUG INTERACTION [None]
  - TRIGEMINAL NEURALGIA [None]
